FAERS Safety Report 9878950 (Version 2)
Quarter: 2014Q2

REPORT INFORMATION
  Report Type: Spontaneous
  Country: US (occurrence: US)
  Receive Date: 20140206
  Receipt Date: 20140423
  Transmission Date: 20141212
  Serious: No
  Sender: FDA-Public Use
  Company Number: US-PFIZER INC-2014034503

PATIENT
  Age: 39 Year
  Sex: Female

DRUGS (3)
  1. VENLAFAXINE HCL [Suspect]
     Indication: ANXIETY
     Dosage: 75 MG, UNK FOR 4 MONTHS
  2. VENLAFAXINE HCL [Suspect]
     Indication: FIBROMYALGIA
  3. DIAZEPAM [Concomitant]
     Indication: SLEEP DISORDER
     Dosage: INFREQUENTLY

REACTIONS (4)
  - Drug ineffective [Recovered/Resolved]
  - Rash [Recovered/Resolved]
  - Dizziness [Recovered/Resolved]
  - Nausea [Recovered/Resolved]
